FAERS Safety Report 18611224 (Version 1)
Quarter: 2020Q4

REPORT INFORMATION
  Report Type: Spontaneous
  Country: US (occurrence: US)
  Receive Date: 20201212
  Receipt Date: 20201212
  Transmission Date: 20210114
  Serious: Yes (Hospitalization)
  Sender: FDA-Public Use
  Company Number: None

PATIENT
  Sex: Male
  Weight: 83.6 kg

DRUGS (3)
  1. DEXAMETHASONE. [Concomitant]
     Active Substance: DEXAMETHASONE
  2. BORTEZOMIB. [Concomitant]
     Active Substance: BORTEZOMIB
  3. LENALIDOMIDE [Suspect]
     Active Substance: LENALIDOMIDE

REACTIONS (7)
  - Nausea [None]
  - Oesophageal adenocarcinoma [None]
  - Abdominal pain upper [None]
  - Eructation [None]
  - Constipation [None]
  - Gastric ulcer haemorrhage [None]
  - Abdominal tenderness [None]

NARRATIVE: CASE EVENT DATE: 20180104
